FAERS Safety Report 18343163 (Version 1)
Quarter: 2020Q4

REPORT INFORMATION
  Report Type: Spontaneous
  Country: US (occurrence: US)
  Receive Date: 20201003
  Receipt Date: 20201003
  Transmission Date: 20210113
  Serious: Yes (Other)
  Sender: FDA-Public Use
  Company Number: None

PATIENT
  Age: 28 Year
  Sex: Female
  Weight: 54 kg

DRUGS (1)
  1. NYQUIL COLD AND FLU [Suspect]
     Active Substance: ACETAMINOPHEN\DEXTROMETHORPHAN HYDROBROMIDE\DOXYLAMINE SUCCINATE
     Indication: NASOPHARYNGITIS
     Dosage: ?          QUANTITY:2 TABLESPOON(S);?
     Route: 048
     Dates: start: 20190520, end: 20190521

REACTIONS (3)
  - Hallucination [None]
  - Night sweats [None]
  - Sleep terror [None]

NARRATIVE: CASE EVENT DATE: 20190520
